FAERS Safety Report 4616687-4 (Version None)
Quarter: 2005Q1

REPORT INFORMATION
  Report Type: 
  Country: None (occurrence: None)
  Receive Date: 20050321
  Receipt Date: 20050308
  Transmission Date: 20050727
  Serious: Yes (Other)
  Sender: FDA-Public Use
  Company Number: OSCN-NO-0503S-0067

PATIENT
  Age: 41 Year
  Sex: Female
  Weight: 46 kg

DRUGS (4)
  1. OMNISCAN [Suspect]
     Indication: BRAIN NEOPLASM
     Dosage: 10 ML, SINGLE DOSE, I.V.
     Route: 042
     Dates: start: 20050303, end: 20050303
  2. ETIZOLAM (DEPAS) [Suspect]
  3. FAMOTIDINE (GASTER D) [Concomitant]
  4. KETOPROFEN (MOHRUS) [Concomitant]

REACTIONS (7)
  - ASTHENIA [None]
  - BLOOD PRESSURE DECREASED [None]
  - DIZZINESS [None]
  - DYSSTASIA [None]
  - EYE PAIN [None]
  - PALLOR [None]
  - PERIPHERAL VASCULAR DISORDER [None]
